FAERS Safety Report 8776602 (Version 1)
Quarter: 2012Q4

REPORT INFORMATION
  Report Type: 
  Country: DO (occurrence: DO)
  Receive Date: 20120910
  Receipt Date: 20120910
  Transmission Date: 20130627
  Serious: Yes (Other)
  Sender: FDA-Public Use
  Company Number: PHHY2008DO044114

PATIENT
  Sex: Male

DRUGS (1)
  1. GLIVEC [Suspect]
     Dates: start: 20070116

REACTIONS (2)
  - Metastases to liver [Unknown]
  - Metastases to large intestine [Unknown]
